FAERS Safety Report 16628099 (Version 2)
Quarter: 2019Q3

REPORT INFORMATION
  Report Type: Report from Study
  Country: US (occurrence: US)
  Receive Date: 20190724
  Receipt Date: 20190920
  Transmission Date: 20191004
  Serious: Yes (Death, Hospitalization, Other)
  Sender: FDA-Public Use
  Company Number: US-ACTELION-A-NJ2019-191136

PATIENT
  Age: 39 Year
  Sex: Male

DRUGS (16)
  1. GABAPENTIN. [Concomitant]
     Active Substance: GABAPENTIN
  2. PROMETHAZINE [Concomitant]
     Active Substance: PROMETHAZINE HYDROCHLORIDE
  3. NARCAN [Concomitant]
     Active Substance: NALOXONE HYDROCHLORIDE
  4. FLUOXETINE [Concomitant]
     Active Substance: FLUOXETINE HYDROCHLORIDE
  5. HYDROXYUREA. [Concomitant]
     Active Substance: HYDROXYUREA
  6. ADEMPAS [Concomitant]
     Active Substance: RIOCIGUAT
  7. REMODULIN [Concomitant]
     Active Substance: TREPROSTINIL
  8. OPSUMIT [Suspect]
     Active Substance: MACITENTAN
     Indication: PULMONARY ARTERIAL HYPERTENSION
     Dosage: 10 MG, QD
     Route: 048
     Dates: start: 20151208, end: 20190724
  9. FOLIC ACID. [Concomitant]
     Active Substance: FOLIC ACID
  10. MORPHINE [Concomitant]
     Active Substance: MORPHINE
  11. JADENU [Concomitant]
     Active Substance: DEFERASIROX
  12. PRADAXA [Concomitant]
     Active Substance: DABIGATRAN ETEXILATE MESYLATE
  13. HYDROMORPHONE [Concomitant]
     Active Substance: HYDROMORPHONE
  14. FUROSEMIDE. [Concomitant]
     Active Substance: FUROSEMIDE
  15. PANTOPRAZOLE [Concomitant]
     Active Substance: PANTOPRAZOLE
  16. TORSEMIDE. [Concomitant]
     Active Substance: TORSEMIDE

REACTIONS (8)
  - General physical health deterioration [Unknown]
  - Pain [Unknown]
  - Device dislocation [Recovered/Resolved]
  - Death [Fatal]
  - Chest pain [Unknown]
  - Acute respiratory failure [Unknown]
  - Hospitalisation [Unknown]
  - Dyspnoea [Unknown]

NARRATIVE: CASE EVENT DATE: 2019
